FAERS Safety Report 10238327 (Version 1)
Quarter: 2014Q2

REPORT INFORMATION
  Report Type: Spontaneous
  Country: US (occurrence: US)
  Receive Date: 20140616
  Receipt Date: 20140616
  Transmission Date: 20141212
  Serious: No
  Sender: FDA-Public Use
  Company Number: US-PFIZER INC-2014163617

PATIENT
  Age: 62 Year
  Sex: Female
  Weight: 72.56 kg

DRUGS (3)
  1. CELEBREX [Suspect]
     Indication: PAIN
     Dosage: 200 MG, 1X/DAY
     Route: 048
  2. CELEBREX [Suspect]
     Indication: JOINT SWELLING
     Dosage: 200 MG, 1X/DAY
     Route: 048
  3. CELEBREX [Suspect]
     Indication: ARTHRITIS

REACTIONS (1)
  - Blood cholesterol abnormal [Unknown]
